FAERS Safety Report 17653184 (Version 1)
Quarter: 2020Q2

REPORT INFORMATION
  Report Type: Spontaneous
  Country: IN (occurrence: IN)
  Receive Date: 20200409
  Receipt Date: 20200409
  Transmission Date: 20200713
  Serious: Yes (Death, Hospitalization)
  Sender: FDA-Public Use
  Company Number: IN-CELLTRION-2020-IN-000043

PATIENT
  Age: 82 Year
  Sex: Male

DRUGS (1)
  1. LINEZOLID TABLETS (NON-SPECIFIC) [Suspect]
     Active Substance: LINEZOLID
     Indication: INFECTION
     Dosage: 600 MG TWICE DAILY
     Route: 065

REACTIONS (4)
  - Hyponatraemia [Unknown]
  - Inappropriate antidiuretic hormone secretion [Unknown]
  - Hypoglycaemia [Fatal]
  - Bone marrow failure [Unknown]
